FAERS Safety Report 9125194 (Version 2)
Quarter: 2013Q1

REPORT INFORMATION
  Report Type: Spontaneous
  Country: AU (occurrence: AU)
  Receive Date: 20130227
  Receipt Date: 20130308
  Transmission Date: 20140127
  Serious: Yes (Other)
  Sender: FDA-Public Use
  Company Number: AU-B.I. PHARMACEUTICALS,INC./RIDGEFIELD-2013-AU-00203AU

PATIENT
  Sex: Male
  Weight: 85.5 kg

DRUGS (13)
  1. PRADAXA [Suspect]
     Indication: ATRIAL FIBRILLATION
     Dosage: 220 MG
  2. SOMAC [Concomitant]
  3. ACTONEL COMBI [Concomitant]
  4. AVAPRO HCT [Concomitant]
  5. MACUVISION [Concomitant]
  6. BICALUTAMIDE [Concomitant]
  7. GLIMEPIRIDE [Concomitant]
  8. LACTULOSE [Concomitant]
  9. MOVICOL [Concomitant]
  10. URAL [Concomitant]
  11. PANADOL [Concomitant]
  12. TEMAZEPAM [Concomitant]
  13. GAVISCON LIQUID [Concomitant]

REACTIONS (2)
  - Prostate cancer [Unknown]
  - Haematuria [Not Recovered/Not Resolved]
